FAERS Safety Report 9887787 (Version 1)
Quarter: 2014Q1

REPORT INFORMATION
  Report Type: Spontaneous
  Country: US (occurrence: None)
  Receive Date: 20140207
  Receipt Date: 20140207
  Transmission Date: 20141002
  Serious: Yes (Hospitalization)
  Sender: FDA-Public Use
  Company Number: None

PATIENT
  Age: 39 Year
  Sex: Female
  Weight: 93.3 kg

DRUGS (2)
  1. TRAZODONE [Suspect]
     Indication: SLEEP DISORDER
     Route: 048
     Dates: start: 20021103, end: 20101119
  2. ZOLPIDEM [Suspect]
     Indication: SLEEP DISORDER
     Route: 048
     Dates: start: 20100318, end: 20101119

REACTIONS (3)
  - Hypotension [None]
  - Neuroleptic malignant syndrome [None]
  - Arrhythmia [None]
